FAERS Safety Report 4292443-4 (Version None)
Quarter: 2004Q1

REPORT INFORMATION
  Report Type: 
  Country: None (occurrence: None)
  Receive Date: 20040211
  Receipt Date: 20040211
  Transmission Date: 20041129
  Serious: Yes (Other)
  Sender: FDA-Public Use
  Company Number: None

PATIENT
  Age: 52 Year
  Sex: Female
  Weight: 78.4723 kg

DRUGS (2)
  1. INNOPRAN [Suspect]
     Indication: MITRAL VALVE PROLAPSE
     Dosage: INDERAL 80 G BID
     Dates: start: 20040204
  2. INNOPRAN [Suspect]
     Indication: MITRAL VALVE PROLAPSE
     Dosage: INDERAL 80 G BID
     Dates: start: 20040210

REACTIONS (4)
  - FEELING ABNORMAL [None]
  - HYPERTENSION [None]
  - MIGRAINE [None]
  - PHARMACEUTICAL PRODUCT COMPLAINT [None]
